FAERS Safety Report 6815470-9 (Version None)
Quarter: 2010Q2

REPORT INFORMATION
  Report Type: 
  Country: None (occurrence: None)
  Receive Date: 20100629
  Receipt Date: 20100614
  Transmission Date: 20101027
  Serious: Yes (Death, Other)
  Sender: FDA-Public Use
  Company Number: 2010073925

PATIENT
  Age: 64 Year
  Sex: Female
  Weight: 77.3 kg

DRUGS (4)
  1. FRAGMIN [Suspect]
     Indication: PROPHYLAXIS
     Dosage: SUBCUTANEOUS
     Dates: start: 19920205
  2. CEFUROXIME [Concomitant]
  3. CEPHRADINE [Concomitant]
  4. METRONIDAZOLE [Concomitant]

REACTIONS (4)
  - GASTROINTESTINAL HAEMORRHAGE [None]
  - HAEMATOMA INFECTION [None]
  - POST PROCEDURAL HAEMATOMA [None]
  - SEPSIS [None]
